FAERS Safety Report 9509370 (Version 2)
Quarter: 2013Q3

REPORT INFORMATION
  Report Type: Spontaneous
  Country: US (occurrence: US)
  Receive Date: 20130909
  Receipt Date: 20130909
  Transmission Date: 20140515
  Serious: No
  Sender: FDA-Public Use
  Company Number: US-BRISTOL-MYERS SQUIBB COMPANY-18978247

PATIENT
  Age: 56 Year
  Sex: Female
  Weight: 78.46 kg

DRUGS (2)
  1. ABILIFY [Suspect]
     Indication: DEPRESSION
  2. CYMBALTA [Concomitant]

REACTIONS (2)
  - Drug ineffective [Unknown]
  - Drug dose omission [Unknown]
